FAERS Safety Report 18628420 (Version 1)
Quarter: 2020Q4

REPORT INFORMATION
  Report Type: Spontaneous
  Country: AT (occurrence: AT)
  Receive Date: 20201217
  Receipt Date: 20201217
  Transmission Date: 20210114
  Serious: Yes (Other)
  Sender: FDA-Public Use
  Company Number: NVSC2020AT329574

PATIENT
  Sex: Female

DRUGS (24)
  1. BENDAMUSTINE [Suspect]
     Active Substance: BENDAMUSTINE
     Indication: B-CELL LYMPHOMA
     Dosage: 6 CYCLES AS R-BENDA, THEN MAINTENANCE 5 TIMES
     Route: 065
     Dates: start: 20110121
  2. BENDAMUSTINE [Suspect]
     Active Substance: BENDAMUSTINE
     Dosage: UNK
     Route: 065
     Dates: start: 20121216
  3. MABTHERA [Suspect]
     Active Substance: RITUXIMAB
     Dosage: 555 MG = 99.99% = 374.95 MG/M2 IN NACL 0.9% 500 ML BAG OF POLYOLEFIN FRESENIUS I.V.
     Route: 065
     Dates: start: 20190613
  4. ZEVALIN [Suspect]
     Active Substance: IBRITUMOMAB TIUXETAN
     Indication: NON-HODGKIN^S LYMPHOMA
     Dosage: UNK
     Route: 065
     Dates: start: 20090626
  5. POLATUZUMAB VEDOTIN. [Suspect]
     Active Substance: POLATUZUMAB VEDOTIN
     Dosage: 82.8 MG = 1.8 MG/KG IN NACL 0.9% 100 ML SACHET OF POLYOLEFIN FRESENIUS I.V., 1H30 MIN
     Route: 065
     Dates: start: 20191116
  6. POLATUZUMAB VEDOTIN. [Suspect]
     Active Substance: POLATUZUMAB VEDOTIN
     Dosage: 88.2 MG = 1.8 MG/KG IN NACL 0.9% 100 ML SACHET OF POLYOLEFIN FRESENIUS I.V., 1H30 MIN
     Route: 065
     Dates: start: 20190711
  7. POLATUZUMAB VEDOTIN. [Suspect]
     Active Substance: POLATUZUMAB VEDOTIN
     Dosage: 1.8 MG/KG IN NACL 0.9% 100 ML SACHET OF POLYOLEFIN FRESENIUS I.V., 1H30 MIN
     Route: 065
     Dates: start: 20191028
  8. MABTHERA [Suspect]
     Active Substance: RITUXIMAB
     Indication: B-CELL LYMPHOMA
     Dosage: UNK
     Route: 065
     Dates: start: 20080507
  9. DOXORUBICIN HYDROCHLORIDE. [Suspect]
     Active Substance: DOXORUBICIN HYDROCHLORIDE
     Indication: B-CELL LYMPHOMA
     Dosage: 4X AS R-MINICHOP
     Route: 065
     Dates: start: 20180820
  10. MABTHERA [Suspect]
     Active Substance: RITUXIMAB
     Dosage: NPP 543.22 MG = 375 MG/M2 AD 543 ML FROM NACL 0.9% 500 ML BAG OF POLYOLEFIN FRESENIUS I.V.
     Route: 065
     Dates: start: 20190911
  11. MABTHERA [Suspect]
     Active Substance: RITUXIMAB
     Dosage: NPP 533.48 MG = 375 MG/M2 AD 533 ML FROM NACL 0.9% 500 ML SACHET OF POLYOLEFIN FRESENIUS I.V.
     Route: 065
     Dates: start: 20191115
  12. CYCLOPHOSPHAMIDE. [Suspect]
     Active Substance: CYCLOPHOSPHAMIDE
     Indication: B-CELL LYMPHOMA
     Dosage: 4X AS R-MINICHOP
     Route: 065
     Dates: start: 20180820
  13. MABTHERA [Suspect]
     Active Substance: RITUXIMAB
     Dosage: 6 CYCLES AS R-BENDA
     Route: 065
     Dates: start: 20110121
  14. MABTHERA [Suspect]
     Active Substance: RITUXIMAB
     Dosage: NPP 557.4 MG = 375 MG/M2 IN NACL 0.9% 500 ML BAG OF POLYOLEFIN FRESENIUS I.V.
     Route: 065
     Dates: start: 20190813
  15. DIFICLIR [Concomitant]
     Active Substance: FIDAXOMICIN
     Indication: PRODUCT USED FOR UNKNOWN INDICATION
     Route: 065
  16. PREDNISOLONE. [Suspect]
     Active Substance: PREDNISOLONE
     Indication: B-CELL LYMPHOMA
     Dosage: 4X AS R-MINICHOP
     Route: 065
     Dates: start: 20180820
  17. POLATUZUMAB VEDOTIN. [Suspect]
     Active Substance: POLATUZUMAB VEDOTIN
     Dosage: 91.8 MG = 1.8 MG/KG IN NACL 0.9% 100 ML SACHET OF POLYOLEFIN FRESENIUS I.V., 1H30 MIN
     Route: 065
     Dates: start: 20190814
  18. POLATUZUMAB VEDOTIN. [Suspect]
     Active Substance: POLATUZUMAB VEDOTIN
     Dosage: 86.4 MG = 1.8 MG/KG IN NACL 0.9% 100 ML SACHET OF POLYOLEFIN FRESENIUS I.V., 1H30 MIN
     Route: 065
     Dates: start: 20190911
  19. MABTHERA [Suspect]
     Active Substance: RITUXIMAB
     Dosage: 548 MG = 375 MG/M2 IN NACL 0.9% 500 ML SACHET OF POLYOLEFIN FRESENIUS I.V.
     Route: 065
     Dates: start: 20190710
  20. VINCRISTINE [Suspect]
     Active Substance: VINCRISTINE
     Indication: B-CELL LYMPHOMA
     Dosage: 4X AS R-MINICHOP
     Route: 065
     Dates: start: 20180820
  21. POLATUZUMAB VEDOTIN. [Suspect]
     Active Substance: POLATUZUMAB VEDOTIN
     Indication: B-CELL LYMPHOMA
     Dosage: 90.9 MG = 1.8 MG/KG IN NACL 0.9% 100 ML BAG OF POLYOLEFIN FRESENIUS I.V., 1H30 MIN
     Route: 065
     Dates: start: 20190614
  22. MABTHERA [Suspect]
     Active Substance: RITUXIMAB
     Dosage: 6 CYCLES AS R-BENDA, THEN MAINTENANCE 5 TIMES
     Route: 065
     Dates: start: 20110121
  23. MABTHERA [Suspect]
     Active Substance: RITUXIMAB
     Dosage: 4X AS R-MINICHOP
     Route: 065
     Dates: start: 20180820
  24. MABTHERA [Suspect]
     Active Substance: RITUXIMAB
     Dosage: 533.48 MG = 375 MG/M2 AD 533 ML FROM NACL 0.9% 500 ML BAG OF POLYOLEFIN FRESENIUS I.V.
     Route: 065
     Dates: start: 20191025

REACTIONS (24)
  - Oesophageal candidiasis [Recovered/Resolved]
  - Lymphoma transformation [Unknown]
  - Cardiomyopathy [Unknown]
  - Tricuspid valve incompetence [Unknown]
  - Thrombophlebitis superficial [Unknown]
  - Rash pruritic [Recovered/Resolved]
  - Weight decreased [Recovered/Resolved]
  - Clostridium difficile colitis [Recovered/Resolved]
  - Pneumonia influenzal [Recovered/Resolved]
  - Klebsiella test positive [Recovered/Resolved]
  - Tumour ulceration [Recovered/Resolved]
  - Dyspnoea [Recovered/Resolved]
  - Chronic obstructive pulmonary disease [Recovered/Resolved]
  - Non-Hodgkin^s lymphoma recurrent [Unknown]
  - Acute myocardial infarction [Unknown]
  - Mitral valve incompetence [Unknown]
  - Aortic stenosis [Unknown]
  - Staphylococcal bacteraemia [Recovered/Resolved]
  - Fall [Unknown]
  - Hypertension [Unknown]
  - Deep vein thrombosis [Unknown]
  - Body temperature [Recovered/Resolved]
  - Disease recurrence [Unknown]
  - Dyspepsia [Recovered/Resolved]

NARRATIVE: CASE EVENT DATE: 20080507
